FAERS Safety Report 22763895 (Version 6)
Quarter: 2023Q4

REPORT INFORMATION
  Report Type: Report from Study
  Country: US (occurrence: US)
  Receive Date: 20230730
  Receipt Date: 20231212
  Transmission Date: 20240109
  Serious: Yes (Hospitalization, Other)
  Sender: FDA-Public Use
  Company Number: US-ABBVIE-5345305

PATIENT
  Sex: Female
  Weight: 88.45 kg

DRUGS (12)
  1. HUMIRA [Suspect]
     Active Substance: ADALIMUMAB
     Indication: Colitis ulcerative
     Dosage: CITRATE FREE, STRENGTH: 40 MG
     Route: 058
     Dates: start: 20150401, end: 2023
  2. HUMIRA [Suspect]
     Active Substance: ADALIMUMAB
     Dosage: CITRATE FREE; FORM STRENGTH: 40 MG FIRST ADMIN DATE 2023
     Route: 058
     Dates: start: 20150401
  3. TYLENOL [Concomitant]
     Active Substance: ACETAMINOPHEN
     Indication: Arthralgia
  4. COENZYME Q10 [Concomitant]
     Active Substance: DIETARY SUPPLEMENT\UBIDECARENONE
     Indication: Product used for unknown indication
  5. OZEMPIC [Concomitant]
     Active Substance: SEMAGLUTIDE
     Indication: Glycosylated haemoglobin increased
  6. ROSUVASTATIN [Concomitant]
     Active Substance: ROSUVASTATIN
     Indication: Blood cholesterol increased
  7. FLUOXETINE [Concomitant]
     Active Substance: FLUOXETINE HYDROCHLORIDE
     Indication: Depression
  8. VITAMINS [Concomitant]
     Active Substance: VITAMINS
     Indication: Supplementation therapy
  9. Caltrate with D3 [Concomitant]
     Indication: Product used for unknown indication
  10. CALTRATE [Concomitant]
     Active Substance: CALCIUM CARBONATE
     Indication: Product used for unknown indication
  11. ASPIRIN [Concomitant]
     Active Substance: ASPIRIN
     Indication: Cardiovascular disorder
     Dosage: FORM STRENGTH: 81 MILLIGRAM
  12. TOPIRAMATE [Concomitant]
     Active Substance: TOPIRAMATE
     Indication: Anxiety

REACTIONS (20)
  - Cartilage atrophy [Recovered/Resolved]
  - Gait disturbance [Recovered/Resolved]
  - Full blood count decreased [Unknown]
  - Meniscus injury [Recovered/Resolved]
  - Hip arthroplasty [Recovered/Resolved]
  - Vasodilatation [Recovering/Resolving]
  - Procedural haemorrhage [Unknown]
  - Poor peripheral circulation [Recovering/Resolving]
  - Platelet count decreased [Recovered/Resolved]
  - Platelet count decreased [Recovered/Resolved]
  - Platelet count decreased [Not Recovered/Not Resolved]
  - Joint swelling [Recovered/Resolved]
  - Meniscus injury [Recovered/Resolved]
  - False positive investigation result [Not Recovered/Not Resolved]
  - Skin discolouration [Recovered/Resolved]
  - Synovial cyst [Recovered/Resolved]
  - Groin pain [Recovered/Resolved]
  - Peripheral swelling [Recovered/Resolved]
  - Osteoarthritis [Not Recovered/Not Resolved]
  - Chondropathy [Not Recovered/Not Resolved]

NARRATIVE: CASE EVENT DATE: 20180101
